FAERS Safety Report 25795043 (Version 1)
Quarter: 2025Q3

REPORT INFORMATION
  Report Type: Spontaneous
  Country: GB (occurrence: GB)
  Receive Date: 20250912
  Receipt Date: 20250912
  Transmission Date: 20251021
  Serious: Yes (Death, Other)
  Sender: AMGEN
  Company Number: GB-AMGEN-GBRSP2025179614

PATIENT

DRUGS (2)
  1. ETANERCEPT [Suspect]
     Active Substance: ETANERCEPT
     Indication: Skin toxicity
     Route: 065
  2. ETANERCEPT [Suspect]
     Active Substance: ETANERCEPT
     Indication: Off label use

REACTIONS (7)
  - Death [Fatal]
  - Skin toxicity [Fatal]
  - Immune-mediated adverse reaction [Unknown]
  - Neoplasm [Unknown]
  - Colitis [Unknown]
  - Hepatitis [Unknown]
  - Off label use [Unknown]
